FAERS Safety Report 17182263 (Version 2)
Quarter: 2020Q1

REPORT INFORMATION
  Report Type: Spontaneous
  Country: GB (occurrence: GB)
  Receive Date: 20191219
  Receipt Date: 20200103
  Transmission Date: 20200409
  Serious: Yes (Other)
  Sender: FDA-Public Use
  Company Number: GB-BAUSCH-BL-2019-065172

PATIENT
  Age: 56 Year
  Sex: Female

DRUGS (11)
  1. RIFAMPICIN [Concomitant]
     Active Substance: RIFAMPIN
     Indication: ENDOCARDITIS BACTERIAL
     Route: 048
  2. GENTAMICIN. [Suspect]
     Active Substance: GENTAMICIN
     Dosage: UNKNOWN DOSE ONCE DAILY
     Route: 065
  3. GENTAMICIN. [Suspect]
     Active Substance: GENTAMICIN
     Indication: ENDOCARDITIS BACTERIAL
     Route: 065
  4. 5-FLUOROURACIL [Concomitant]
     Active Substance: FLUOROURACIL
     Indication: BREAST CANCER
     Dosage: UNK (INFUSIONAL, VIA A LEFT SIDED SINGLE LUMEN SKIN-TUNNELLED CATHETER, ECARBOF CHEMOTHERAPY)
  5. FLUCLOXACILLIN [Concomitant]
     Active Substance: FLUCLOXACILLIN
     Indication: ENDOCARDITIS BACTERIAL
  6. CIPROFLOXACIN. [Concomitant]
     Active Substance: CIPROFLOXACIN
     Indication: ENDOCARDITIS BACTERIAL
  7. G-CSF [Concomitant]
     Active Substance: GRANULOCYTE COLONY-STIMULATING FACTOR NOS
     Indication: NEUTROPENIA
  8. FUCIDIN [FUSIDIC ACID] [Concomitant]
     Active Substance: FUSIDIC ACID
     Indication: ENDOCARDITIS BACTERIAL
  9. WARFARIN [Concomitant]
     Active Substance: WARFARIN
     Indication: ANTICOAGULANT THERAPY
  10. CARBOPLATIN. [Concomitant]
     Active Substance: CARBOPLATIN
     Indication: BREAST CANCER
     Dosage: UNK (VIA A LEFT SIDED SINGLE LUMEN SKIN-TUNNELLED CATHETER, ECARBOF CHEMOTHERAPY)
  11. EPIRUBICIN [Concomitant]
     Active Substance: EPIRUBICIN
     Indication: BREAST CANCER
     Dosage: UNK (VIA A LEFT SIDED SINGLE LUMEN SKIN-TUNNELLED CATHETER, ECARBOF CHEMOTHERAPY)

REACTIONS (1)
  - VIIIth nerve injury [Unknown]
